FAERS Safety Report 8802078 (Version 1)
Quarter: 2012Q4

REPORT INFORMATION
  Report Type: 
  Country: BR (occurrence: BR)
  Receive Date: 20120921
  Receipt Date: 20120921
  Transmission Date: 20130627
  Serious: Yes (Death, Other)
  Sender: FDA-Public Use
  Company Number: PHHY2012BR081254

PATIENT
  Sex: Female
  Weight: 42 kg

DRUGS (5)
  1. EXELON [Suspect]
     Indication: MEMORY IMPAIRMENT
     Dosage: UNK
  2. SUSTRATE [Concomitant]
     Indication: CARDIAC FIBRILLATION
     Dosage: UNK
  3. TICLID [Concomitant]
     Indication: CEREBROVASCULAR ACCIDENT PROPHYLAXIS
     Dosage: 1 tablet daily
     Route: 048
  4. CENTRUM [Concomitant]
     Indication: VITAMIN SUPPLEMENTATION
     Dosage: 1 tablet a day
     Route: 048
  5. ZILION [Concomitant]
     Indication: GASTRIC DISORDER
     Dosage: 1 tablet a day

REACTIONS (5)
  - Multi-organ failure [Fatal]
  - Respiratory failure [Fatal]
  - Amyotrophic lateral sclerosis [Unknown]
  - Gait disturbance [Unknown]
  - Speech disorder [Unknown]
